FAERS Safety Report 6691656-1 (Version None)
Quarter: 2010Q2

REPORT INFORMATION
  Report Type: 
  Country: None (occurrence: None)
  Receive Date: 20100422
  Receipt Date: 20090904
  Transmission Date: 20101027
  Serious: No
  Sender: FDA-Public Use
  Company Number: US-ASTRAZENECA-2009SE11753

PATIENT
  Sex: Female
  Weight: 59 kg

DRUGS (2)
  1. METOPROLOL SUCCINATE [Suspect]
     Indication: EXTRASYSTOLES
     Dates: end: 20081001
  2. METOPROLOL SUCCINATE [Suspect]
     Dates: start: 20090904

REACTIONS (7)
  - ANXIETY [None]
  - BLOOD PRESSURE FLUCTUATION [None]
  - DIZZINESS [None]
  - EXTRASYSTOLES [None]
  - FATIGUE [None]
  - LIP SWELLING [None]
  - NIGHTMARE [None]
